FAERS Safety Report 12673949 (Version 2)
Quarter: 2016Q3

REPORT INFORMATION
  Report Type: Spontaneous
  Country: GB (occurrence: GB)
  Receive Date: 20160822
  Receipt Date: 20160902
  Transmission Date: 20161109
  Serious: Yes (Other)
  Sender: FDA-Public Use
  Company Number: GB-SA-2016SA150121

PATIENT
  Age: 44 Year
  Sex: Female

DRUGS (4)
  1. EPINEPHRINE. [Suspect]
     Active Substance: EPINEPHRINE
     Indication: INFILTRATION ANAESTHESIA
     Dosage: 1.7 ML OF LIDOCAINE 2% WITH ADRENALINE 1:80,000
     Route: 002
     Dates: start: 20141003, end: 20141003
  2. EPINEPHRINE. [Suspect]
     Active Substance: EPINEPHRINE
     Indication: INFILTRATION ANAESTHESIA
     Dosage: PALATAL: 0.5 ML LIDOCAINE 2% WITH ADRENALINE 1:80,000
     Route: 065
     Dates: start: 20141003, end: 20141003
  3. LIDOCAINE HYDROCHLORIDE. [Suspect]
     Active Substance: LIDOCAINE HYDROCHLORIDE
     Indication: INFILTRATION ANAESTHESIA
     Dosage: PALATAL: 0.5 ML LIDOCAINE 2% WITH ADRENALINE 1:80,000
     Route: 065
     Dates: start: 20141003, end: 20141003
  4. LIDOCAINE HYDROCHLORIDE. [Suspect]
     Active Substance: LIDOCAINE HYDROCHLORIDE
     Indication: INFILTRATION ANAESTHESIA
     Dosage: 1.7 ML OF LIDOCAINE 2% WITH ADRENALINE 1:80,000
     Route: 002
     Dates: start: 20141003, end: 20141003

REACTIONS (7)
  - Application site vesicles [Recovering/Resolving]
  - Mucosal ulceration [Recovering/Resolving]
  - Erythema [Recovering/Resolving]
  - Mucosal necrosis [Recovering/Resolving]
  - Social problem [Recovering/Resolving]
  - Stress [Recovering/Resolving]
  - Post-traumatic neuralgia [Recovering/Resolving]

NARRATIVE: CASE EVENT DATE: 201410
